FAERS Safety Report 7232764-6 (Version None)
Quarter: 2011Q1

REPORT INFORMATION
  Report Type: 
  Country: None (occurrence: None)
  Receive Date: 20110119
  Receipt Date: 20110114
  Transmission Date: 20110831
  Serious: Yes (Other)
  Sender: FDA-Public Use
  Company Number: FR-PFIZER INC-2010178025

PATIENT
  Age: 36 Year
  Sex: Female

DRUGS (5)
  1. AUGMENTIN [Suspect]
     Indication: BRONCHITIS
     Dosage: 1 G, 2X/DAY
     Route: 048
     Dates: start: 20101118, end: 20101122
  2. RHINADVIL [Suspect]
     Indication: BRONCHITIS
     Dosage: 2 UNK, UNK
     Route: 048
     Dates: start: 20101118, end: 20101121
  3. NEO-CODION SYRUP [Suspect]
     Indication: BRONCHITIS
     Dosage: UNK
     Route: 048
     Dates: start: 20101118, end: 20101122
  4. DOLIPRANE [Suspect]
     Indication: BRONCHITIS
     Dosage: 1 G, 3X/DAY
     Route: 048
     Dates: start: 20101118, end: 20101123
  5. SPIRIVA [Suspect]
     Dosage: UNK
     Route: 055
     Dates: start: 20101118, end: 20101122

REACTIONS (3)
  - THROMBOCYTOPENIA [None]
  - AGRANULOCYTOSIS [None]
  - MONOCYTOPENIA [None]
